FAERS Safety Report 20434360 (Version 4)
Quarter: 2022Q1

REPORT INFORMATION
  Report Type: Report from Study
  Country: US (occurrence: US)
  Receive Date: 20220206
  Receipt Date: 20220319
  Transmission Date: 20220423
  Serious: No
  Sender: FDA-Public Use
  Company Number: US-NOVARTISTESTPH-NVSC2022US021839

PATIENT
  Sex: Female

DRUGS (13)
  1. MEKINIST [Suspect]
     Active Substance: TRAMETINIB DIMETHYL SULFOXIDE
     Indication: Lung neoplasm malignant
     Dosage: 2 MG, QD (TAKE 1 TAB BY MOUTH DAILY ON AN EMPTY STOMACH 1HR BEFORE OR 2HRS AFTER FOOD. TAKE AT SAME
     Route: 048
     Dates: start: 20220118
  2. MEKINIST [Suspect]
     Active Substance: TRAMETINIB DIMETHYL SULFOXIDE
     Dosage: 2 MG
     Route: 048
     Dates: start: 20220112
  3. MEKINIST [Suspect]
     Active Substance: TRAMETINIB DIMETHYL SULFOXIDE
     Dosage: 0.5 MG
     Route: 048
     Dates: end: 20220127
  4. TAFINLAR [Suspect]
     Active Substance: DABRAFENIB MESYLATE
     Indication: Product used for unknown indication
     Dosage: QD (TAKE 1 TAB BY MOUTH DAILY ON AN EMPTY STOMACH 1HR BEFORE OR 2HRS AFTER FOOD)
     Route: 065
  5. CALCIUM\VITAMIN D [Concomitant]
     Active Substance: CALCIUM\VITAMIN D
     Indication: Product used for unknown indication
     Dosage: UNK (600 TO 800 M)
     Route: 065
  6. DEXAMETHASONE [Concomitant]
     Active Substance: DEXAMETHASONE
     Indication: Product used for unknown indication
     Dosage: 4 MG
     Route: 065
  7. FLONASE [Concomitant]
     Active Substance: FLUTICASONE PROPIONATE
     Indication: Product used for unknown indication
     Dosage: UNK (50 MCG/AC)
     Route: 065
  8. LUCENTIS [Concomitant]
     Active Substance: RANIBIZUMAB
     Indication: Product used for unknown indication
     Dosage: UNK (0.3MG/0.05ML)
     Route: 065
  9. METOPROLOL [Concomitant]
     Active Substance: METOPROLOL
     Indication: Product used for unknown indication
     Dosage: UNK
     Route: 065
  10. ONDANSETRON [Concomitant]
     Active Substance: ONDANSETRON
     Indication: Product used for unknown indication
     Dosage: UNK
     Route: 065
  11. PROCHLORPERAZINE MALEATE [Concomitant]
     Active Substance: PROCHLORPERAZINE MALEATE
     Indication: Product used for unknown indication
     Dosage: UNK
     Route: 065
  12. ZINC [Concomitant]
     Active Substance: ZINC
     Indication: Product used for unknown indication
     Dosage: UNK
     Route: 065
  13. LOSARTAN POTASSIUM [Concomitant]
     Active Substance: LOSARTAN POTASSIUM
     Indication: Product used for unknown indication
     Dosage: 50 MG
     Route: 065

REACTIONS (11)
  - Dysuria [Unknown]
  - Feeling abnormal [Unknown]
  - Nervous system disorder [Unknown]
  - Memory impairment [Not Recovered/Not Resolved]
  - Tremor [Unknown]
  - Confusional state [Unknown]
  - Hyponatraemic syndrome [Unknown]
  - Pain in extremity [Unknown]
  - Pyrexia [Not Recovered/Not Resolved]
  - Asthenia [Unknown]
  - Disorientation [Not Recovered/Not Resolved]
